FAERS Safety Report 6107434-8 (Version None)
Quarter: 2009Q1

REPORT INFORMATION
  Report Type: 
  Country: None (occurrence: None)
  Receive Date: 20090309
  Receipt Date: 20090225
  Transmission Date: 20090719
  Serious: Yes (Hospitalization)
  Sender: FDA-Public Use
  Company Number: US-PFIZER INC-2009175276

PATIENT
  Sex: Female
  Weight: 161.5 kg

DRUGS (15)
  1. SUTENT [Suspect]
     Indication: SMALL CELL LUNG CANCER EXTENSIVE STAGE
     Dosage: 50 MG/24H, D1-28 Q42D
     Route: 048
     Dates: start: 20090128, end: 20090213
  2. ADVAIR HFA [Concomitant]
     Dosage: 500/50MG 2X/DAY
  3. CLOTRIMAZOLE [Concomitant]
     Route: 048
  4. BETAMETHASONE [Concomitant]
  5. COMPAZINE [Concomitant]
     Dosage: 10 MG, UNK
  6. FIBERCON [Concomitant]
  7. LEVOTHYROXINE [Concomitant]
     Dosage: 50 UG, UNK
     Route: 048
  8. LEVAQUIN [Concomitant]
     Dosage: 250 MG, UNK
     Route: 048
  9. LOVASTIN [Concomitant]
     Dosage: 20 MG, UNK
     Route: 048
  10. NEXIUM [Concomitant]
     Dosage: 40 MG, UNK
     Route: 048
  11. PLAVIX [Concomitant]
     Dosage: 75 MG, UNK
     Route: 048
  12. SPIRONOLACTONE [Concomitant]
     Dosage: 50 MG, UNK
  13. STOOL SOFTENER [Concomitant]
  14. TORSEMIDE [Concomitant]
     Dosage: 20 MG, UNK
  15. VESICARE [Concomitant]
     Dosage: 10 MG, UNK
     Route: 048

REACTIONS (2)
  - DEHYDRATION [None]
  - PULMONARY OEDEMA [None]
